FAERS Safety Report 15879827 (Version 2)
Quarter: 2019Q1

REPORT INFORMATION
  Report Type: Spontaneous
  Country: US (occurrence: US)
  Receive Date: 20190128
  Receipt Date: 20190319
  Transmission Date: 20190417
  Serious: Yes (Hospitalization)
  Sender: FDA-Public Use
  Company Number: US-NOVOPROD-643122

PATIENT
  Age: 21 Year
  Sex: Female
  Weight: 70.8 kg

DRUGS (1)
  1. TRESIBA [Suspect]
     Active Substance: INSULIN DEGLUDEC
     Indication: TYPE 1 DIABETES MELLITUS
     Dosage: 33 IU, QD
     Route: 058
     Dates: start: 201808

REACTIONS (3)
  - Diabetic ketoacidosis [Recovered/Resolved]
  - Systemic lupus erythematosus [Recovered/Resolved]
  - Product storage error [Unknown]

NARRATIVE: CASE EVENT DATE: 2018
